FAERS Safety Report 19835585 (Version 1)
Quarter: 2021Q3

REPORT INFORMATION
  Report Type: Spontaneous
  Country: DE (occurrence: DE)
  Receive Date: 20210915
  Receipt Date: 20210915
  Transmission Date: 20211014
  Serious: Yes (Other)
  Sender: FDA-Public Use
  Company Number: DE-PFIZER INC-202101143038

PATIENT
  Sex: Female

DRUGS (1)
  1. CYTOTEC [Suspect]
     Active Substance: MISOPROSTOL

REACTIONS (10)
  - Uterine tachysystole [Recovered/Resolved]
  - Dyspnoea [Recovered/Resolved]
  - Vulvovaginal injury [Recovered/Resolved]
  - Suffocation feeling [Recovered/Resolved]
  - Off label use [Unknown]
  - Uterine haemorrhage [Recovered/Resolved]
  - Perineal injury [Recovered/Resolved]
  - Uterine cervical laceration [Recovered/Resolved]
  - Traumatic delivery [Recovered/Resolved]
  - Maternal exposure during pregnancy [Unknown]
